FAERS Safety Report 9891023 (Version 3)
Quarter: 2014Q1

REPORT INFORMATION
  Report Type: Spontaneous
  Country: KR (occurrence: KR)
  Receive Date: 20140212
  Receipt Date: 20140314
  Transmission Date: 20141002
  Serious: Yes (Hospitalization)
  Sender: FDA-Public Use
  Company Number: KR-CELGENEUS-286-21880-14014864

PATIENT
  Age: 51 Year
  Sex: Female
  Weight: 52.6 kg

DRUGS (8)
  1. REVLIMID [Suspect]
     Indication: PLASMA CELL MYELOMA
     Dosage: 25 MILLIGRAM
     Route: 048
     Dates: start: 20131216, end: 20140122
  2. REVLIMID [Suspect]
     Dosage: 25 MILLIGRAM
     Route: 048
     Dates: end: 20140211
  3. MLN9708\PLACEBO [Suspect]
     Indication: PLASMA CELL MYELOMA
     Dosage: 4 MILLIGRAM
     Route: 048
     Dates: start: 20131216, end: 20140121
  4. MLN9708\PLACEBO [Suspect]
     Dosage: 4 MILLIGRAM
     Route: 048
     Dates: end: 20140211
  5. DEXAMETHASONE [Suspect]
     Indication: PLASMA CELL MYELOMA
     Dosage: 40 MILLIGRAM
     Route: 048
     Dates: start: 20131216, end: 20140123
  6. DEXAMETHASONE [Suspect]
     Dosage: 40 MILLIGRAM
     Route: 048
     Dates: end: 20140211
  7. DEXTROSE [Concomitant]
     Indication: PROPHYLAXIS AGAINST DEHYDRATION
     Route: 041
     Dates: start: 20140123, end: 20140123
  8. BUSCOPAN [Concomitant]
     Indication: PRODUCT USED FOR UNKNOWN INDICATION
     Route: 065
     Dates: start: 20140123, end: 20140123

REACTIONS (1)
  - Ileus [Recovered/Resolved]
